FAERS Safety Report 8540701-7 (Version None)
Quarter: 2012Q3

REPORT INFORMATION
  Report Type: 
  Country: None (occurrence: None)
  Receive Date: 20120726
  Receipt Date: 20120723
  Transmission Date: 20120928
  Serious: Yes (Other)
  Sender: FDA-Public Use
  Company Number: US-BAYER-2012-063098

PATIENT
  Age: 63 Year
  Sex: Female
  Weight: 68.027 kg

DRUGS (6)
  1. SELENIUM [Concomitant]
     Dosage: 200 MG, UNK
  2. PRILOSEC [Concomitant]
     Dosage: 1 UNK, UNK
  3. BETASERON [Suspect]
     Indication: MULTIPLE SCLEROSIS
     Dosage: 0.3 MG, QOD
     Dates: start: 20120421, end: 20120511
  4. VITAMIN D [Concomitant]
     Dosage: 1000 IU, UNK
  5. ZINC SULFATE [Concomitant]
     Dosage: 50 MG, UNK
  6. AMPYRA [Concomitant]
     Dosage: 10 MG, BID
     Dates: start: 20110701

REACTIONS (7)
  - INJECTION SITE ERYTHEMA [None]
  - HYPERSENSITIVITY [None]
  - PRURITUS [None]
  - STOMATITIS [None]
  - INJECTION SITE HAEMATOMA [None]
  - SPEECH DISORDER [None]
  - LIP SWELLING [None]
